FAERS Safety Report 18541428 (Version 1)
Quarter: 2020Q4

REPORT INFORMATION
  Report Type: Spontaneous
  Country: FR (occurrence: FR)
  Receive Date: 20201124
  Receipt Date: 20201124
  Transmission Date: 20210114
  Serious: Yes (Life-Threatening, Hospitalization, Other)
  Sender: FDA-Public Use
  Company Number: FR-SA-2020SA335080

PATIENT

DRUGS (2)
  1. DERINOX (NAPHAZOLINE + PREDNISOLONE) [Suspect]
     Active Substance: NAPHAZOLINE NITRATE\PREDNISOLONE
     Indication: PAIN PROPHYLAXIS
     Dosage: 2 POINT/ SPOT SPRAYS
     Route: 045
     Dates: start: 202009, end: 202009
  2. NASACORT [Suspect]
     Active Substance: TRIAMCINOLONE ACETONIDE
     Indication: PAIN PROPHYLAXIS
     Dosage: SPRAYING MORNING AND EVENING
     Route: 045
     Dates: start: 20200912, end: 20200918

REACTIONS (1)
  - Intracranial artery dissection [Recovered/Resolved with Sequelae]

NARRATIVE: CASE EVENT DATE: 20200925
